FAERS Safety Report 10593559 (Version 1)
Quarter: 2014Q4

REPORT INFORMATION
  Report Type: Spontaneous
  Country: GB (occurrence: GB)
  Receive Date: 20141119
  Receipt Date: 20141119
  Transmission Date: 20150529
  Serious: Yes (Hospitalization)
  Sender: FDA-Public Use
  Company Number: PHHY2014GB149587

PATIENT
  Age: 42 Year
  Sex: Female
  Weight: 99 kg

DRUGS (12)
  1. PARACETAMOL [Concomitant]
     Active Substance: ACETAMINOPHEN
  2. CLOZAPINE. [Concomitant]
     Active Substance: CLOZAPINE
  3. HALOPERIDOL. [Concomitant]
     Active Substance: HALOPERIDOL
  4. IBUPROFEN. [Concomitant]
     Active Substance: IBUPROFEN
  5. LORAZEPAM. [Concomitant]
     Active Substance: LORAZEPAM
  6. SALBUTAMOL [Concomitant]
     Active Substance: ALBUTEROL
  7. MULTI VITAMIN [Concomitant]
     Active Substance: VITAMINS
  8. CLARITHROMYCIN. [Suspect]
     Active Substance: CLARITHROMYCIN
     Indication: TOOTH ABSCESS
     Dosage: 500 MG, BID
     Route: 048
     Dates: start: 20141020, end: 20141027
  9. METFORMIN [Concomitant]
     Active Substance: METFORMIN HYDROCHLORIDE
  10. COD LIVER OIL [Concomitant]
     Active Substance: COD LIVER OIL
  11. GAVISCON [Concomitant]
     Active Substance: ALUMINUM HYDROXIDE\MAGNESIUM CARBONATE
  12. QVAR [Concomitant]
     Active Substance: BECLOMETHASONE DIPROPIONATE

REACTIONS (3)
  - Mental impairment [Unknown]
  - Confusional state [Recovered/Resolved]
  - Dysarthria [Recovered/Resolved]

NARRATIVE: CASE EVENT DATE: 20141024
